FAERS Safety Report 8135490-4 (Version None)
Quarter: 2012Q1

REPORT INFORMATION
  Report Type: 
  Country: None (occurrence: None)
  Receive Date: 20120214
  Receipt Date: 20120206
  Transmission Date: 20120608
  Serious: Yes (Death, Hospitalization)
  Sender: FDA-Public Use
  Company Number: IT-BAXTER-2012BH003869

PATIENT
  Age: 66 Year
  Sex: Male

DRUGS (10)
  1. EPIRUBICIN HYDROCHLORIDE [Suspect]
     Indication: LEIOMYOSARCOMA
     Route: 042
     Dates: start: 20110922, end: 20110922
  2. ROXICODONE [Concomitant]
     Indication: PRODUCT USED FOR UNKNOWN INDICATION
     Route: 048
  3. ALLOPURINOL [Concomitant]
     Indication: PRODUCT USED FOR UNKNOWN INDICATION
     Route: 048
  4. UROMITEXAN [Concomitant]
     Indication: LEIOMYOSARCOMA
     Route: 042
     Dates: start: 20110922, end: 20110924
  5. DISSENTEN [Concomitant]
     Indication: PRODUCT USED FOR UNKNOWN INDICATION
     Route: 065
  6. CALCIUM CARBONATE [Concomitant]
     Indication: PRODUCT USED FOR UNKNOWN INDICATION
     Route: 065
  7. ESOMEPRAZOLE [Concomitant]
     Indication: PRODUCT USED FOR UNKNOWN INDICATION
     Route: 048
  8. SODIUM BICARBONATE [Concomitant]
     Indication: PRODUCT USED FOR UNKNOWN INDICATION
     Route: 065
  9. IFOSFAMIDE [Suspect]
     Indication: LEIOMYOSARCOMA
     Route: 042
     Dates: start: 20110922, end: 20110924
  10. PARACETAMOL [Concomitant]
     Indication: PRODUCT USED FOR UNKNOWN INDICATION
     Route: 048

REACTIONS (2)
  - SEPTIC SHOCK [None]
  - FEBRILE NEUTROPENIA [None]
